FAERS Safety Report 4388458-8 (Version None)
Quarter: 2004Q2

REPORT INFORMATION
  Report Type: 
  Country: None (occurrence: None)
  Receive Date: 20040625
  Receipt Date: 20040618
  Transmission Date: 20050107
  Serious: Yes (Death)
  Sender: FDA-Public Use
  Company Number: US-JNJFOC-20040103010

PATIENT
  Age: 62 Year
  Sex: Female
  Weight: 85 kg

DRUGS (23)
  1. SPORANOX [Suspect]
     Indication: BRONCHOPULMONARY ASPERGILLOSIS ALLERGIC
     Dosage: 400 MG, 2 IN 1 DAY, ORAL
     Route: 048
     Dates: start: 20030625, end: 20031121
  2. THEOPHYLLINE (THEOPHYLLINE) CAPSULES [Concomitant]
  3. MAXAIR (PIRBUTEROL ACETATE) INHALATION [Concomitant]
  4. METERED DOSE INHALER (NOS) (OTHER ANTI-ASTHAMTICS, INHALANTS) INHALATI [Concomitant]
  5. LASIX [Concomitant]
  6. CEFTIN (CEFUROXIME AXETIL) TABLETS [Concomitant]
  7. K PHOS (K-PHOS NEUTRAL) TABLETS [Concomitant]
  8. PROVERA [Concomitant]
  9. POTASSIUM CHLORIDE (POTASSIUM CHLORIDE) CAPSULES [Concomitant]
  10. PRAVACHOL [Concomitant]
  11. FLONASE (FLUTICASONE PROPINATE) SPRAY [Concomitant]
  12. ESTRADERM [Concomitant]
  13. GUAIFENSESIN (GUAIFENESIN) TABLETS [Concomitant]
  14. BENADRYL (DIPHENYDRAMINE HYDROCHLORIDE) CAPSULES [Concomitant]
  15. COVERA HS (VERAPAMIL HYDROCHLORIDE) TABLETS [Concomitant]
  16. PREDNISONE [Concomitant]
  17. PREVACID (LANSOPRAZOLE) CAPULES [Concomitant]
  18. ZETIA (ALL OTHER NON-THERAPEUTIC PRODUCTS0 TABLETS [Concomitant]
  19. ZILEUTIN (ZILEUTON) TABLETS [Concomitant]
  20. ALLERGA (FEXOFENADINE HYDROCHLORIDE) TABLETS [Concomitant]
  21. ALTACE (RAMIPRIL) CAPSULES [Concomitant]
  22. BACLOFEN (BACLOFEN) TABLETS [Concomitant]
  23. CLONAZEPAM (CLONAZEPAM) TABLETS [Concomitant]

REACTIONS (3)
  - ASTHMA [None]
  - CONDITION AGGRAVATED [None]
  - MULTI-ORGAN FAILURE [None]
